FAERS Safety Report 4932550-3 (Version None)
Quarter: 2006Q1

REPORT INFORMATION
  Report Type: 
  Country: None (occurrence: None)
  Receive Date: 20060303
  Receipt Date: 20051130
  Transmission Date: 20060701
  Serious: Yes (Death)
  Sender: FDA-Public Use
  Company Number: US-MERCK-0512USA00016

PATIENT
  Age: 73 Year
  Sex: Male
  Weight: 76 kg

DRUGS (2)
  1. VIOXX [Suspect]
     Indication: MONARTHRITIS
     Route: 048
     Dates: start: 20000701, end: 20010601
  2. EXTRA STRENGTH TYLENOL [Concomitant]
     Route: 065

REACTIONS (1)
  - ARTERIOSCLEROSIS [None]
